FAERS Safety Report 10944127 (Version 1)
Quarter: 2015Q1

REPORT INFORMATION
  Report Type: Report from Study
  Country: JP (occurrence: JP)
  Receive Date: 20150323
  Receipt Date: 20150323
  Transmission Date: 20150721
  Serious: Yes (Other)
  Sender: FDA-Public Use
  Company Number: JP-ROCHE-1553240

PATIENT
  Age: 76 Year
  Sex: Male
  Weight: 54 kg

DRUGS (8)
  1. PEG-INTERFERON ALFA 2A [Suspect]
     Active Substance: PEGINTERFERON ALFA-2A
     Indication: CHRONIC HEPATITIS C
     Route: 058
     Dates: start: 20140701, end: 20140722
  2. PEG-INTERFERON ALFA 2A [Suspect]
     Active Substance: PEGINTERFERON ALFA-2A
     Route: 058
  3. URSODEOXYCHOLIC ACID [Concomitant]
     Active Substance: URSODIOL
     Indication: CHRONIC HEPATITIS C
     Route: 048
     Dates: start: 20140701
  4. RIBAVIRIN. [Suspect]
     Active Substance: RIBAVIRIN
     Indication: CHRONIC HEPATITIS C
     Route: 048
     Dates: start: 20140701
  5. SIMEPREVIR [Suspect]
     Active Substance: SIMEPREVIR
     Indication: CHRONIC HEPATITIS C
     Route: 048
     Dates: start: 20140701, end: 20140922
  6. LORAZEPAM. [Concomitant]
     Active Substance: LORAZEPAM
     Indication: NEUROSIS
     Route: 048
     Dates: start: 20140701
  7. TEPRENONE [Concomitant]
     Active Substance: TEPRENONE
     Indication: OESOPHAGITIS
     Route: 048
     Dates: start: 20140701
  8. CIMETIDINE [Concomitant]
     Active Substance: CIMETIDINE
     Indication: OESOPHAGITIS

REACTIONS (1)
  - White blood cell count decreased [Not Recovered/Not Resolved]

NARRATIVE: CASE EVENT DATE: 20140729
